FAERS Safety Report 10177690 (Version 1)
Quarter: 2014Q2

REPORT INFORMATION
  Report Type: Spontaneous
  Country: US (occurrence: US)
  Receive Date: 20140516
  Receipt Date: 20140516
  Transmission Date: 20141212
  Serious: No
  Sender: FDA-Public Use
  Company Number: US-SA-2014SA014328

PATIENT
  Age: 89 Year
  Sex: Male

DRUGS (3)
  1. APIDRA SOLOSTAR [Suspect]
     Indication: TYPE 2 DIABETES MELLITUS
     Dosage: PRODUCT STRTED OVER TWO YEARS AGO. DOSE: SLIDING SCALE. FREQUENCY - MEALTIMES.
     Route: 058
  2. SOLOSTAR [Concomitant]
     Indication: TYPE 2 DIABETES MELLITUS
     Dosage: PRODUCT STARTED OVER TWO YEARS AGO.
  3. INSULIN [Concomitant]

REACTIONS (3)
  - Dyspnoea [Unknown]
  - Dysstasia [Unknown]
  - Injection site haemorrhage [Unknown]
